FAERS Safety Report 26003154 (Version 1)
Quarter: 2025Q4

REPORT INFORMATION
  Report Type: Spontaneous
  Country: US (occurrence: US)
  Receive Date: 20251106
  Receipt Date: 20251106
  Transmission Date: 20260117
  Serious: No
  Sender: SANOFI AVENTIS
  Company Number: US-SA-2025SA321950

PATIENT
  Age: 49 Year
  Sex: Male
  Weight: 81.82 kg

DRUGS (6)
  1. DUPIXENT [Suspect]
     Active Substance: DUPILUMAB
     Indication: Dermatitis atopic
     Dosage: 300 MG, QOW
     Route: 058
     Dates: start: 2025
  2. LORAZEPAM [Concomitant]
     Active Substance: LORAZEPAM
  3. TRIAMCINOLONE ACETONIDE [Concomitant]
     Active Substance: TRIAMCINOLONE ACETONIDE
  4. MUPIROCIN [Concomitant]
     Active Substance: MUPIROCIN
  5. TACROLIMUS [Concomitant]
     Active Substance: TACROLIMUS
  6. PROPRANOLOL HYDROCHLORIDE [Concomitant]
     Active Substance: PROPRANOLOL HYDROCHLORIDE

REACTIONS (1)
  - Eye irritation [Unknown]

NARRATIVE: CASE EVENT DATE: 20250901
